FAERS Safety Report 13713120 (Version 2)
Quarter: 2017Q3

REPORT INFORMATION
  Report Type: Report from Study
  Country: DE (occurrence: DE)
  Receive Date: 20170704
  Receipt Date: 20170831
  Transmission Date: 20171127
  Serious: Yes (Other)
  Sender: FDA-Public Use
  Company Number: PHHY2014DE083678

PATIENT
  Age: 3 Year
  Sex: Female
  Weight: 15.5 kg

DRUGS (10)
  1. CARBAMAZEPINE. [Concomitant]
     Active Substance: CARBAMAZEPINE
     Indication: EPILEPSY
     Dosage: 850 MG, QD (325 MG-0-525 MG)
     Route: 065
     Dates: start: 20130909
  2. VOTUBIA [Suspect]
     Active Substance: EVEROLIMUS
     Dosage: 3 MG, QD
     Route: 048
     Dates: start: 20140506, end: 20140609
  3. LEVETIRACETAM UCB [Concomitant]
     Active Substance: LEVETIRACETAM
     Dosage: 500 OT, BID
     Route: 048
  4. VOTUBIA [Suspect]
     Active Substance: EVEROLIMUS
     Indication: ASTROCYTOMA, LOW GRADE
     Dosage: 2 MG, QD
     Route: 048
     Dates: start: 20140418, end: 20140505
  5. TIMONIL [Concomitant]
     Active Substance: CARBAMAZEPINE
     Indication: EPILEPSY
     Dosage: 900 MG, QD (375-0-525 MG)
     Route: 048
     Dates: start: 201301
  6. LEVETIRACETAM UCB [Concomitant]
     Active Substance: LEVETIRACETAM
     Indication: EPILEPSY
     Dosage: 1000 MG, QD (500-0-500 MG)
     Route: 048
     Dates: start: 20140509
  7. LAMICTAL [Concomitant]
     Active Substance: LAMOTRIGINE
     Indication: EPILEPSY
     Dosage: 42.5 MG, QD (17.5-0-25 MG)
     Route: 048
     Dates: start: 20140612
  8. VOTUBIA [Suspect]
     Active Substance: EVEROLIMUS
     Dosage: 3 MG, QD
     Route: 048
     Dates: start: 20141003, end: 20141101
  9. VIGABATRIN. [Concomitant]
     Active Substance: VIGABATRIN
     Indication: EPILEPSY
     Dosage: 750 MG, BID
     Route: 065
     Dates: start: 20130909
  10. SABRIL [Concomitant]
     Active Substance: VIGABATRIN
     Indication: EPILEPSY
     Dosage: 750 OT, BID
     Route: 048
     Dates: start: 201105, end: 20140508

REACTIONS (4)
  - Seizure [Recovered/Resolved]
  - Seizure [Recovering/Resolving]
  - Status epilepticus [Recovered/Resolved]
  - Status epilepticus [Recovered/Resolved]

NARRATIVE: CASE EVENT DATE: 20140501
